FAERS Safety Report 6535220-3 (Version None)
Quarter: 2010Q1

REPORT INFORMATION
  Report Type: 
  Country: None (occurrence: None)
  Receive Date: 20100113
  Receipt Date: 20100107
  Transmission Date: 20100710
  Serious: Yes (Other)
  Sender: FDA-Public Use
  Company Number: US-BAYER-201010590NA

PATIENT
  Age: 26 Year
  Sex: Female
  Weight: 73 kg

DRUGS (3)
  1. MIRENA [Suspect]
     Indication: CONTRACEPTION
     Dosage: CONTINUOUS
     Route: 015
     Dates: start: 20091215
  2. ADVIL [Concomitant]
  3. FERNAGREK [Concomitant]

REACTIONS (2)
  - RENAL STONE REMOVAL [None]
  - SUPPRESSED LACTATION [None]
